FAERS Safety Report 23973159 (Version 7)
Quarter: 2025Q2

REPORT INFORMATION
  Report Type: Other
  Country: US (occurrence: US)
  Receive Date: 20240613
  Receipt Date: 20250619
  Transmission Date: 20250716
  Serious: Yes (Other)
  Sender: TRAVERE THERAPEUTICS
  Company Number: US-TRAVERE-2024TVT00507

PATIENT
  Age: 77 Year
  Sex: Male

DRUGS (3)
  1. FILSPARI [Suspect]
     Active Substance: SPARSENTAN
     Indication: IgA nephropathy
     Dosage: EXPIRY DATE: 30-SEP-2024
     Route: 048
     Dates: start: 20240508
  2. FILSPARI [Suspect]
     Active Substance: SPARSENTAN
     Route: 048
     Dates: start: 20240522
  3. PANTOPRAZOLE [Suspect]
     Active Substance: PANTOPRAZOLE
     Indication: Product used for unknown indication

REACTIONS (16)
  - Glomerular filtration rate decreased [Recovering/Resolving]
  - Muscle strength abnormal [None]
  - Hyperkalaemia [None]
  - Abdominal discomfort [Recovered/Resolved]
  - Fatigue [None]
  - Anaemia [None]
  - Gastroenteritis viral [Unknown]
  - Hypotension [Recovered/Resolved]
  - Dehydration [Unknown]
  - Skin disorder [Unknown]
  - Asthenia [Unknown]
  - Spinal synovial cyst [Unknown]
  - Blood pressure fluctuation [Recovering/Resolving]
  - Muscle fatigue [Unknown]
  - Muscular weakness [Unknown]
  - Muscle spasms [Unknown]

NARRATIVE: CASE EVENT DATE: 20240522
